FAERS Safety Report 10187644 (Version 1)
Quarter: 2014Q2

REPORT INFORMATION
  Report Type: Spontaneous
  Country: FR (occurrence: None)
  Receive Date: 20140520
  Receipt Date: 20140520
  Transmission Date: 20141212
  Serious: Yes (Hospitalization)
  Sender: FDA-Public Use
  Company Number: IPC201405-000218

PATIENT
  Age: 62 Year
  Sex: Male

DRUGS (2)
  1. ALLOPURINOL [Suspect]
  2. AMOXICILLIN (AMOXICILLIN) (AMOXICILLIN) [Suspect]
     Indication: ODYNOPHAGIA

REACTIONS (9)
  - Drug reaction with eosinophilia and systemic symptoms [None]
  - Rash morbilliform [None]
  - Dermatitis exfoliative [None]
  - Hepatitis [None]
  - Eosinophilia [None]
  - Pancytopenia [None]
  - Histiocytosis haematophagic [None]
  - Hyperthyroidism [None]
  - Autoimmune thyroiditis [None]
